FAERS Safety Report 9181309 (Version 1)
Quarter: 2013Q1

REPORT INFORMATION
  Report Type: Spontaneous
  Country: US (occurrence: US)
  Receive Date: 20130322
  Receipt Date: 20130322
  Transmission Date: 20140127
  Serious: Yes (Other)
  Sender: FDA-Public Use
  Company Number: US-BAYER-2013-033339

PATIENT
  Age: 37 Year
  Sex: Female

DRUGS (6)
  1. YASMIN [Suspect]
  2. SYNTHROID [Concomitant]
     Dosage: 150 MCG TAB EVERY DAY
  3. MUCO-FEN DM [Concomitant]
     Dosage: 60-1000 MG TABS TWICE A DAY
  4. PREDNISONE [Concomitant]
     Dosage: 20 MG, TABS-2 TABS EVERY DAY
  5. SEPTRA DS [Concomitant]
     Dosage: 800-160 MG TABS- 1 TAB EVERY DAY
  6. LORTAB [Concomitant]

REACTIONS (1)
  - Deep vein thrombosis [None]
